FAERS Safety Report 5289854-7 (Version None)
Quarter: 2007Q2

REPORT INFORMATION
  Report Type: 
  Country: None (occurrence: None)
  Receive Date: 20070406
  Receipt Date: 20070307
  Transmission Date: 20071010
  Serious: Yes (Death, Hospitalization, Other)
  Sender: FDA-Public Use
  Company Number: US-PFIZER INC-2007018658

PATIENT
  Sex: Male

DRUGS (2)
  1. CELEBREX [Suspect]
     Indication: ARTHRITIS
     Dates: start: 20020624, end: 20021014
  2. BEXTRA [Suspect]
     Indication: ARTHRITIS
     Dates: start: 20030318, end: 20031214

REACTIONS (1)
  - MYOCARDIAL INFARCTION [None]
